FAERS Safety Report 22834483 (Version 2)
Quarter: 2024Q1

REPORT INFORMATION
  Report Type: Spontaneous
  Country: CA (occurrence: CA)
  Receive Date: 20230817
  Receipt Date: 20240213
  Transmission Date: 20240410
  Serious: Yes (Death, Life-Threatening, Hospitalization, Disabling, Other)
  Sender: FDA-Public Use
  Company Number: CA-TAKEDA-2023TUS080148

PATIENT
  Age: 44 Year
  Sex: Female
  Weight: 97 kg

DRUGS (4)
  1. PANTOPRAZOLE [Suspect]
     Active Substance: PANTOPRAZOLE
     Indication: Rheumatoid arthritis
     Dosage: UNK
     Route: 016
  2. PANTOPRAZOLE [Suspect]
     Active Substance: PANTOPRAZOLE
     Dosage: UNK
     Route: 065
  3. PANTOPRAZOLE [Suspect]
     Active Substance: PANTOPRAZOLE
     Dosage: UNK
     Route: 048
  4. RITUXAN HYCELA [Suspect]
     Active Substance: HYALURONIDASE (HUMAN RECOMBINANT)\RITUXIMAB
     Indication: Rheumatoid arthritis
     Dosage: UNK
     Route: 058

REACTIONS (45)
  - Arthritis [Fatal]
  - Bone erosion [Fatal]
  - Breast cancer stage III [Fatal]
  - Bursitis [Fatal]
  - C-reactive protein increased [Fatal]
  - Crohn^s disease [Fatal]
  - Dizziness [Fatal]
  - Drug tolerance decreased [Fatal]
  - Ear infection [Fatal]
  - Exostosis [Fatal]
  - Fatigue [Fatal]
  - Feeling hot [Fatal]
  - Foot deformity [Fatal]
  - Frequent bowel movements [Fatal]
  - Hepatic cirrhosis [Fatal]
  - Hypercholesterolaemia [Fatal]
  - Hypersensitivity [Fatal]
  - Insomnia [Fatal]
  - Joint dislocation [Fatal]
  - Joint range of motion decreased [Fatal]
  - Joint stiffness [Fatal]
  - Laboratory test abnormal [Fatal]
  - Laryngitis [Fatal]
  - Lupus-like syndrome [Fatal]
  - Nausea [Fatal]
  - Oedema peripheral [Fatal]
  - Osteoporosis [Fatal]
  - Pain in extremity [Fatal]
  - Pancreatitis [Fatal]
  - Peripheral venous disease [Fatal]
  - Pneumonia [Fatal]
  - Porphyria acute [Fatal]
  - Pulmonary fibrosis [Fatal]
  - Rectal haemorrhage [Fatal]
  - Red blood cell sedimentation rate increased [Fatal]
  - Respiratory disorder [Fatal]
  - Retinitis [Fatal]
  - Visual impairment [Fatal]
  - Walking aid user [Fatal]
  - White blood cell count increased [Fatal]
  - Abdominal pain [Fatal]
  - Maternal exposure timing unspecified [Unknown]
  - Pregnancy [Unknown]
  - Therapeutic product effect decreased [Unknown]
  - Treatment failure [Unknown]
